FAERS Safety Report 9422050 (Version 1)
Quarter: 2013Q3

REPORT INFORMATION
  Report Type: Spontaneous
  Country: US (occurrence: None)
  Receive Date: 20130725
  Receipt Date: 20130725
  Transmission Date: 20140515
  Serious: Yes (Life-Threatening)
  Sender: FDA-Public Use
  Company Number: None

PATIENT
  Age: 14 Year
  Sex: Female
  Weight: 48.99 kg

DRUGS (1)
  1. LEVETIRACETAM [Suspect]
     Indication: EPILEPSY
     Dosage: 3 TABS BID PO
     Dates: start: 20130709, end: 20130718

REACTIONS (4)
  - Dyskinesia [None]
  - Saliva altered [None]
  - Salivary hypersecretion [None]
  - Product substitution issue [None]
